FAERS Safety Report 25823982 (Version 1)
Quarter: 2025Q3

REPORT INFORMATION
  Report Type: Spontaneous
  Country: US (occurrence: US)
  Receive Date: 20250919
  Receipt Date: 20250919
  Transmission Date: 20251020
  Serious: Yes (Other)
  Sender: ALEXION PHARMACEUTICALS
  Company Number: US-ASTRAZENECA-202509GLO010809US

PATIENT
  Sex: Male

DRUGS (16)
  1. NEXIUM [Suspect]
     Active Substance: ESOMEPRAZOLE MAGNESIUM
  2. DICYCLOMINE [Concomitant]
     Active Substance: DICYCLOMINE HYDROCHLORIDE
  3. LOMOTIL [Concomitant]
     Active Substance: ATROPINE SULFATE\DIPHENOXYLATE HYDROCHLORIDE
  4. FENTANYL [Concomitant]
     Active Substance: FENTANYL
  5. HYOSCYAMINE [Concomitant]
     Active Substance: HYOSCYAMINE
  6. MORPHINE [Concomitant]
     Active Substance: MORPHINE
  7. ONDANSETRON [Concomitant]
     Active Substance: ONDANSETRON
  8. SODIUM CHLORIDE [Concomitant]
     Active Substance: SODIUM CHLORIDE
  9. IOPAMIDOL [Concomitant]
     Active Substance: IOPAMIDOL
  10. METHYLPREDNISOLONE [Concomitant]
     Active Substance: METHYLPREDNISOLONE
  11. Albuterol hikma [Concomitant]
  12. LIDOCAINE [Concomitant]
     Active Substance: LIDOCAINE
  13. MIDAZOLAM [Concomitant]
     Active Substance: MIDAZOLAM
  14. VORICONAZOLE [Concomitant]
     Active Substance: VORICONAZOLE
  15. SUMATRIPTAN [Concomitant]
     Active Substance: SUMATRIPTAN
  16. GEMTESA [Concomitant]
     Active Substance: VIBEGRON

REACTIONS (1)
  - Adenocarcinoma gastric [Unknown]

NARRATIVE: CASE EVENT DATE: 20050101
